FAERS Safety Report 11899669 (Version 1)
Quarter: 2016Q1

REPORT INFORMATION
  Report Type: Report from Study
  Country: US (occurrence: US)
  Receive Date: 20160108
  Receipt Date: 20160108
  Transmission Date: 20160526
  Serious: No
  Sender: FDA-Public Use
  Company Number: US-ABBVIE-15P-163-1515613-00

PATIENT
  Age: 50 Year
  Sex: Female

DRUGS (4)
  1. VIEKIRA PAK [Suspect]
     Active Substance: DASABUVIR\OMBITASVIR\PARITAPREVIR\RITONAVIR
     Indication: HEPATITIS C
     Dosage: 3 TABLETS IN AM AND 1 TABLET IN PM
     Route: 048
     Dates: start: 20151123
  2. XANAX [Concomitant]
     Active Substance: ALPRAZOLAM
     Indication: PRODUCT USED FOR UNKNOWN INDICATION
  3. OXYCODONE [Concomitant]
     Active Substance: OXYCODONE
     Indication: PRODUCT USED FOR UNKNOWN INDICATION
  4. NAPROXEN. [Concomitant]
     Active Substance: NAPROXEN
     Indication: PRODUCT USED FOR UNKNOWN INDICATION

REACTIONS (16)
  - Diarrhoea [Recovering/Resolving]
  - Gastrointestinal disorder [Recovering/Resolving]
  - Anxiety [Unknown]
  - Nausea [Recovering/Resolving]
  - Dry mouth [Recovering/Resolving]
  - Feelings of worthlessness [Unknown]
  - Confusional state [Unknown]
  - Vomiting [Recovering/Resolving]
  - Fatigue [Recovering/Resolving]
  - Stress [Unknown]
  - Cough [Recovering/Resolving]
  - Lip dry [Recovering/Resolving]
  - Feeling abnormal [Unknown]
  - Affective disorder [Unknown]
  - Headache [Recovering/Resolving]
  - Musculoskeletal chest pain [Unknown]

NARRATIVE: CASE EVENT DATE: 20151127
